FAERS Safety Report 9186672 (Version 1)
Quarter: 2013Q1

REPORT INFORMATION
  Report Type: Spontaneous
  Country: US (occurrence: US)
  Receive Date: 20130325
  Receipt Date: 20130325
  Transmission Date: 20140127
  Serious: No
  Sender: FDA-Public Use
  Company Number: US-GLAXOSMITHKLINE-A0980064A

PATIENT
  Age: 69 Year
  Sex: Male

DRUGS (7)
  1. RYTHMOL SR [Suspect]
     Indication: ATRIAL FIBRILLATION
     Dosage: 850MG TWICE PER DAY
     Route: 048
     Dates: start: 2006
  2. BYSTOLIC [Concomitant]
  3. QUINAPRIL [Concomitant]
  4. HYDROCHLOROTHIAZIDE [Concomitant]
  5. OMEPRAZOLE [Concomitant]
  6. ASPIRIN [Concomitant]
  7. WARFARIN [Concomitant]

REACTIONS (1)
  - Pruritus [Not Recovered/Not Resolved]
